FAERS Safety Report 9010908 (Version 2)
Quarter: 2013Q1

REPORT INFORMATION
  Report Type: Spontaneous
  Country: NL (occurrence: NL)
  Receive Date: 20130109
  Receipt Date: 20130215
  Transmission Date: 20140127
  Serious: Yes (Hospitalization)
  Sender: FDA-Public Use
  Company Number: NL-JNJFOC-20130101664

PATIENT
  Age: 15 Year
  Sex: Male

DRUGS (3)
  1. RISPERIDON [Suspect]
     Indication: ASPERGER^S DISORDER
     Route: 065
     Dates: start: 20080305, end: 20120328
  2. RISPERIDON [Suspect]
     Indication: ASPERGER^S DISORDER
     Route: 065
     Dates: start: 20060908, end: 20080304
  3. RISPERIDON [Suspect]
     Indication: ASPERGER^S DISORDER
     Route: 065
     Dates: start: 20120329, end: 20121124

REACTIONS (2)
  - Cerebral infarction [Recovering/Resolving]
  - Cerebral artery embolism [Recovering/Resolving]
